FAERS Safety Report 23247975 (Version 1)
Quarter: 2023Q4

REPORT INFORMATION
  Report Type: Spontaneous
  Country: CA (occurrence: CA)
  Receive Date: 20231130
  Receipt Date: 20231130
  Transmission Date: 20240110
  Serious: Yes (Other)
  Sender: FDA-Public Use
  Company Number: CA-002147023-NVSC2023CA252788

PATIENT
  Sex: Female

DRUGS (1)
  1. AFINITOR [Suspect]
     Active Substance: EVEROLIMUS
     Indication: Bile duct cancer stage IV
     Dosage: UNK
     Route: 065
     Dates: start: 202311

REACTIONS (3)
  - Tumour marker increased [Unknown]
  - Fatigue [Unknown]
  - Abdominal pain [Unknown]
